FAERS Safety Report 7222280-X (Version None)
Quarter: 2010Q4

REPORT INFORMATION
  Report Type: 
  Country: None (occurrence: None)
  Receive Date: 20101126
  Receipt Date: 20100916
  Transmission Date: 20110411
  Serious: No
  Sender: FDA-Public Use
  Company Number: 313765

PATIENT
  Age: 67 Year
  Sex: Female

DRUGS (2)
  1. VICTOZA [Suspect]
     Indication: DIABETES PROPHYLAXIS
     Dosage: 1.8 MG, QD, SUBCUTANEOUS
     Route: 058
     Dates: start: 20100518
  2. VICTOZA [Suspect]
     Indication: WEIGHT CONTROL
     Dosage: 1.8 MG, QD, SUBCUTANEOUS
     Route: 058
     Dates: start: 20100518

REACTIONS (5)
  - CONSTIPATION [None]
  - HEADACHE [None]
  - HUNGER [None]
  - WEIGHT DECREASED [None]
  - WEIGHT INCREASED [None]
